FAERS Safety Report 5045526-5 (Version None)
Quarter: 2006Q2

REPORT INFORMATION
  Report Type: 
  Country: None (occurrence: None)
  Receive Date: 20060601
  Receipt Date: 20060216
  Transmission Date: 20061013
  Serious: No
  Sender: FDA-Public Use
  Company Number: 2006-BP-01251BP

PATIENT
  Age: 68 Year
  Sex: Female
  Weight: 90.72 kg

DRUGS (7)
  1. SPIRIVA [Suspect]
     Indication: CHRONIC OBSTRUCTIVE PULMONARY DISEASE
     Dosage: 1 PUF (18 MCG) IH
     Route: 055
     Dates: end: 20051020
  2. WELBUTRIN XR [Concomitant]
  3. COMBIVENT (COMBIVENT / 01261001 / ) [Concomitant]
  4. REGLAN [Concomitant]
  5. NEXIUM [Concomitant]
  6. AZMACORT [Concomitant]
  7. CELEBREX [Concomitant]

REACTIONS (3)
  - ASTHENIA [None]
  - DIZZINESS [None]
  - HEART RATE DECREASED [None]
